FAERS Safety Report 7776289-8 (Version None)
Quarter: 2011Q3

REPORT INFORMATION
  Report Type: 
  Country: None (occurrence: None)
  Receive Date: 20110926
  Receipt Date: 20110915
  Transmission Date: 20111222
  Serious: Yes (Other)
  Sender: FDA-Public Use
  Company Number: FR-JNJFOC-20081205870

PATIENT
  Sex: Female

DRUGS (1)
  1. RISPERDAL [Suspect]
     Indication: PRODUCT USED FOR UNKNOWN INDICATION
     Route: 065

REACTIONS (9)
  - DYSPNOEA [None]
  - SENSORY DISTURBANCE [None]
  - ASTHENIA [None]
  - MENTAL DISORDER [None]
  - INCOHERENT [None]
  - PAIN [None]
  - DECREASED APPETITE [None]
  - ADVERSE EVENT [None]
  - WEIGHT INCREASED [None]
